FAERS Safety Report 8271264-1 (Version None)
Quarter: 2012Q1

REPORT INFORMATION
  Report Type: 
  Country: None (occurrence: None)
  Receive Date: 20120328
  Receipt Date: 20101118
  Transmission Date: 20120608
  Serious: Yes (Hospitalization, Other)
  Sender: FDA-Public Use
  Company Number: PHHY2010US76972

PATIENT
  Age: 53 Year
  Sex: Male

DRUGS (3)
  1. CLOZAPINE [Suspect]
     Dosage: ORAL
     Route: 048
  2. CLOZECIL [Concomitant]
  3. FANAPT [Suspect]
     Dosage: ORAL
     Route: 048

REACTIONS (1)
  - AGRANULOCYTOSIS [None]
